FAERS Safety Report 7447956-0 (Version None)
Quarter: 2011Q2

REPORT INFORMATION
  Report Type: 
  Country: None (occurrence: None)
  Receive Date: 20110429
  Receipt Date: 20110421
  Transmission Date: 20111010
  Serious: Yes (Hospitalization)
  Sender: FDA-Public Use
  Company Number: US-ABBOTT-11P-163-0721218-01

PATIENT
  Sex: Male

DRUGS (5)
  1. HUMIRA [Suspect]
     Dosage: WEEK 2
     Route: 058
     Dates: start: 20090801, end: 20090801
  2. HUMIRA [Suspect]
     Route: 058
     Dates: start: 20090801, end: 20090813
  3. HUMIRA [Suspect]
     Indication: CROHN'S DISEASE
     Dosage: (BASELINE)
     Route: 058
     Dates: start: 20090730, end: 20090730
  4. HUMIRA [Suspect]
     Route: 058
     Dates: start: 20091202, end: 20100104
  5. AZATHIOPRINE [Concomitant]
     Indication: CROHN'S DISEASE
     Dates: start: 20090730

REACTIONS (1)
  - TRIGEMINAL NEURALGIA [None]
